FAERS Safety Report 13088401 (Version 1)
Quarter: 2017Q1

REPORT INFORMATION
  Report Type: Spontaneous
  Country: FR (occurrence: FR)
  Receive Date: 20170105
  Receipt Date: 20170105
  Transmission Date: 20170428
  Serious: Yes (Life-Threatening, Hospitalization, Disabling)
  Sender: FDA-Public Use
  Company Number: FR-PFIZER INC-2016605081

PATIENT
  Age: 62 Year
  Sex: Female

DRUGS (9)
  1. ENDOXAN /00021101/ [Suspect]
     Active Substance: CYCLOPHOSPHAMIDE
     Indication: BREAST CANCER
     Dosage: 840 MG, CYCLIC (EVERY 21 DAYS)
     Route: 042
     Dates: start: 20110923, end: 201112
  2. TAXOL [Suspect]
     Active Substance: PACLITAXEL
     Indication: BREAST CANCER
     Dosage: 138 MG, CYCLIC (WEEKLY)
     Route: 042
     Dates: start: 20111125, end: 20120119
  3. FUROSEMIDE. [Concomitant]
     Active Substance: FUROSEMIDE
     Indication: CARDIAC FAILURE
     Dosage: 60 MG, DAILY
     Dates: start: 20161212
  4. AROMASINE [Concomitant]
     Active Substance: EXEMESTANE
     Dosage: 1 DF, DAILY
     Dates: start: 201509
  5. RAMIPRIL. [Concomitant]
     Active Substance: RAMIPRIL
     Indication: CARDIAC FAILURE
     Dosage: 2.5 UNK, 2X/DAY
     Dates: start: 20161212
  6. FLUOROURACIL. [Suspect]
     Active Substance: FLUOROURACIL
     Indication: BREAST CANCER
     Dosage: 850 MG, CYCLIC (EVERY 21 DAYS)
     Route: 042
     Dates: start: 20110923, end: 201112
  7. FARMORUBICIN [Suspect]
     Active Substance: EPIRUBICIN HYDROCHLORIDE
     Indication: BREAST CANCER
     Dosage: 170 MG, CYCLIC (EVERY 21 DAYS)
     Route: 042
     Dates: start: 20110923, end: 201112
  8. BISOPROLOL FUMARATE. [Suspect]
     Active Substance: BISOPROLOL FUMARATE
     Indication: CARDIAC FAILURE
     Dosage: 2.5 MG, 2X/DAY
     Route: 048
     Dates: start: 20161212, end: 20161213
  9. AMOXICILLIN. [Concomitant]
     Active Substance: AMOXICILLIN
     Indication: BRONCHITIS
     Dosage: UNK
     Dates: start: 20161205

REACTIONS (2)
  - Cardio-respiratory arrest [Recovering/Resolving]
  - Congestive cardiomyopathy [Not Recovered/Not Resolved]

NARRATIVE: CASE EVENT DATE: 201612
